FAERS Safety Report 15820226 (Version 1)
Quarter: 2019Q1

REPORT INFORMATION
  Report Type: Spontaneous
  Country: NL (occurrence: NL)
  Receive Date: 20190114
  Receipt Date: 20190114
  Transmission Date: 20190417
  Serious: Yes (Hospitalization)
  Sender: FDA-Public Use
  Company Number: PHHY2019NL003943

PATIENT
  Age: 63 Year
  Sex: Male

DRUGS (6)
  1. PACLITAXEL. [Suspect]
     Active Substance: PACLITAXEL
     Indication: NON-SMALL CELL LUNG CANCER
     Dosage: 200 MG/M2, Q3W, DOSE AS PER PROTOCOLDATE OF MOST RECENT DOSE OF 320 MG ON :11/DEC/2018
     Route: 042
     Dates: start: 20181024
  2. BEVACIZUMAB. [Suspect]
     Active Substance: BEVACIZUMAB
     Indication: NON-SMALL CELL LUNG CANCER
     Dosage: 15 MG/KG, Q3W, DATE OF MOST RECENT DOSE OF 1325 MG ON :11/DEC/2018
     Route: 042
     Dates: start: 20181024
  3. CEFUROXIME. [Concomitant]
     Active Substance: CEFUROXIME
     Dosage: 1000 MG, UNK
     Route: 048
  4. CARBOPLATIN. [Suspect]
     Active Substance: CARBOPLATIN
     Indication: NON-SMALL CELL LUNG CANCER
     Dosage: 1 UNK, Q3W, AREA UNDER THE CURVE 6DATE OF MOST RECENT DOSE OF 700 MG ON :11/DEC/2018
     Route: 042
     Dates: start: 20181024
  5. OXYCODON [Concomitant]
     Active Substance: OXYCODONE
     Indication: PRODUCT USED FOR UNKNOWN INDICATION
     Route: 065
  6. CEFUROXIME. [Concomitant]
     Active Substance: CEFUROXIME
     Indication: PRODUCT USED FOR UNKNOWN INDICATION
     Dosage: 1500 MG, UNK
     Route: 042

REACTIONS (2)
  - Febrile neutropenia [Unknown]
  - Urinary tract infection [Not Recovered/Not Resolved]

NARRATIVE: CASE EVENT DATE: 20181223
